FAERS Safety Report 5450266-4 (Version None)
Quarter: 2007Q3

REPORT INFORMATION
  Report Type: 
  Country: None (occurrence: None)
  Receive Date: 20070912
  Receipt Date: 20070904
  Transmission Date: 20080115
  Serious: Yes (Other)
  Sender: FDA-Public Use
  Company Number: US-PFIZER INC-2007074416

PATIENT
  Sex: Female
  Weight: 76.818 kg

DRUGS (6)
  1. CHANTIX [Suspect]
     Indication: SMOKING CESSATION THERAPY
  2. CENTRUM [Concomitant]
  3. CALCIUM [Concomitant]
  4. FOLIC ACID [Concomitant]
  5. ALL OTHER THERAPEUTIC PRODUCTS [Concomitant]
  6. THIAMINE HCL [Concomitant]

REACTIONS (5)
  - AMNESIA [None]
  - FATIGUE [None]
  - NAUSEA [None]
  - PLASTIC SURGERY [None]
  - WEIGHT INCREASED [None]
